FAERS Safety Report 9708169 (Version 2)
Quarter: 2014Q1

REPORT INFORMATION
  Report Type: Spontaneous
  Country: CA (occurrence: CA)
  Receive Date: 20131125
  Receipt Date: 20140116
  Transmission Date: 20141002
  Serious: Yes (Other)
  Sender: FDA-Public Use
  Company Number: CA-BAXTER-2013BAX045512

PATIENT
  Age: 62 Year
  Sex: Male
  Weight: 70 kg

DRUGS (7)
  1. GAMMAGARD LIQUID -IMMUNE GLOBULIN INTRAVENOUS (HUMAN), [IGIV] 10% [Suspect]
     Indication: LYMPHOCYTIC LYMPHOMA
     Route: 042
     Dates: start: 20130809, end: 20130809
  2. GAMMAGARD LIQUID -IMMUNE GLOBULIN INTRAVENOUS (HUMAN), [IGIV] 10% [Suspect]
     Indication: HYPOGAMMAGLOBULINAEMIA
  3. GAMUNEX [Concomitant]
     Indication: LYMPHOCYTIC LYMPHOMA
     Route: 042
     Dates: start: 20121006
  4. GAMUNEX [Concomitant]
     Indication: HYPOGAMMAGLOBULINAEMIA
     Route: 042
     Dates: start: 20130419, end: 20130419
  5. GAMUNEX [Concomitant]
     Route: 042
     Dates: start: 20130517, end: 20130517
  6. GAMUNEX [Concomitant]
     Route: 042
     Dates: start: 20130614, end: 20130614
  7. GAMUNEX [Concomitant]
     Route: 042
     Dates: start: 20130712, end: 20130712

REACTIONS (11)
  - Feeling cold [Recovered/Resolved]
  - Wheezing [Recovered/Resolved]
  - Flushing [Recovered/Resolved]
  - Oxygen saturation decreased [Recovered/Resolved]
  - Tachycardia [Recovered/Resolved]
  - Hypertension [Recovered/Resolved]
  - Pyrexia [Recovered/Resolved]
  - Dyspnoea [Recovered/Resolved]
  - Use of accessory respiratory muscles [Recovered/Resolved]
  - Productive cough [Recovered/Resolved]
  - Hypersensitivity [Recovered/Resolved]
